FAERS Safety Report 9718959 (Version 1)
Quarter: 2013Q4

REPORT INFORMATION
  Report Type: Report from Study
  Country: CA (occurrence: CA)
  Receive Date: 20131127
  Receipt Date: 20131127
  Transmission Date: 20140711
  Serious: Yes (Other)
  Sender: FDA-Public Use
  Company Number: CA-ABBVIE-13P-028-1172117-00

PATIENT
  Age: 56 Year
  Sex: Male
  Weight: 57.66 kg

DRUGS (5)
  1. HUMIRA [Suspect]
     Indication: CROHN^S DISEASE
     Route: 058
     Dates: start: 20130624, end: 20131021
  2. MORPHINE [Suspect]
     Indication: PAIN
     Route: 048
     Dates: start: 201310
  3. AZATHIOPRINE [Concomitant]
     Indication: CROHN^S DISEASE
     Route: 048
     Dates: start: 2010
  4. WARFARIN [Concomitant]
     Indication: ANTICOAGULANT THERAPY
     Route: 048
     Dates: start: 201301
  5. ALENDRONATE [Concomitant]
     Indication: PRODUCT USED FOR UNKNOWN INDICATION
     Dosage: WEEKLY
     Route: 048

REACTIONS (5)
  - Intestinal obstruction [Recovering/Resolving]
  - Intestinal stenosis [Recovering/Resolving]
  - Procedural pain [Not Recovered/Not Resolved]
  - Constipation [Recovered/Resolved]
  - Abdominal distension [Recovered/Resolved]
